FAERS Safety Report 23170593 (Version 1)
Quarter: 2023Q4

REPORT INFORMATION
  Report Type: Spontaneous
  Country: US (occurrence: None)
  Receive Date: 20231109
  Receipt Date: 20231109
  Transmission Date: 20240110
  Serious: Yes (Other)
  Sender: FDA-Public Use
  Company Number: None

PATIENT
  Age: 37 Year
  Sex: Male

DRUGS (2)
  1. FLUTICASONE PROPIONATE [Suspect]
     Active Substance: FLUTICASONE PROPIONATE
     Indication: Anosmia
     Dosage: 100 UG MICROGRAM DAILY NASAL
     Route: 045
     Dates: start: 20230926, end: 20231004
  2. Nasal saline irrigation [Concomitant]
     Dates: start: 20230926

REACTIONS (4)
  - Irritability [None]
  - Agitation [None]
  - Insomnia [None]
  - Depression [None]

NARRATIVE: CASE EVENT DATE: 20230926
